FAERS Safety Report 18218534 (Version 1)
Quarter: 2020Q3

REPORT INFORMATION
  Report Type: Spontaneous
  Country: US (occurrence: US)
  Receive Date: 20200901
  Receipt Date: 20200901
  Transmission Date: 20201103
  Serious: No
  Sender: FDA-Public Use
  Company Number: US-TARO-2020TAR01059

PATIENT

DRUGS (1)
  1. TOPICORT [Suspect]
     Active Substance: DESOXIMETASONE
     Indication: EXPOSURE TO TOXIC AGENT
     Dosage: UNK
     Route: 065

REACTIONS (2)
  - Drug ineffective [Unknown]
  - Product substitution issue [Unknown]
